FAERS Safety Report 8586540-2 (Version None)
Quarter: 2012Q3

REPORT INFORMATION
  Report Type: 
  Country: None (occurrence: None)
  Receive Date: 20120810
  Receipt Date: 20120806
  Transmission Date: 20120928
  Serious: No
  Sender: FDA-Public Use
  Company Number: US-ASTRAZENECA-2012SE41879

PATIENT
  Age: 48 Year
  Sex: Male
  Weight: 70.3 kg

DRUGS (26)
  1. SEROQUEL XR [Suspect]
     Indication: MAJOR DEPRESSION
     Route: 048
     Dates: start: 20080101
  2. VERAMYST [Concomitant]
  3. VENTOLIN [Concomitant]
  4. GAVISCON [Concomitant]
  5. MELATONIN [Concomitant]
  6. AZALASTINE [Concomitant]
  7. DONNATAL [Concomitant]
  8. SIMVASTATIN [Concomitant]
  9. ZYRTEC [Concomitant]
  10. CELEXA [Concomitant]
  11. VALIUM [Concomitant]
  12. ZOFRAN [Concomitant]
  13. ZANTAC [Concomitant]
  14. CARAFATE [Concomitant]
  15. ALBUTEROL [Concomitant]
     Dosage: 0.83 %
  16. VALIUM [Concomitant]
  17. IMMUNOTHERAPY TREATMENT [Concomitant]
  18. PRAMOSONE [Concomitant]
  19. TYLENOL [Concomitant]
  20. NACO3 [Concomitant]
  21. SEROQUEL XR [Suspect]
     Route: 048
  22. DULERA [Concomitant]
  23. BENADRYL [Concomitant]
  24. DOXEPIN [Suspect]
     Route: 065
  25. OMEPRAZOLE [Concomitant]
     Route: 048
  26. IMITREX [Concomitant]

REACTIONS (9)
  - MUSCULOSKELETAL DISCOMFORT [None]
  - SOMNOLENCE [None]
  - DRUG DOSE OMISSION [None]
  - THERAPEUTIC RESPONSE UNEXPECTED [None]
  - COGNITIVE DISORDER [None]
  - INJURY [None]
  - DEPRESSION [None]
  - MEMORY IMPAIRMENT [None]
  - CONVERSION DISORDER [None]
